FAERS Safety Report 6804920-X (Version None)
Quarter: 2010Q2

REPORT INFORMATION
  Report Type: 
  Country: None (occurrence: None)
  Receive Date: 20100628
  Receipt Date: 20070709
  Transmission Date: 20101027
  Serious: No
  Sender: FDA-Public Use
  Company Number: US-PFIZER INC-2007056480

PATIENT
  Sex: Male
  Weight: 90.9 kg

DRUGS (2)
  1. XALATAN [Suspect]
     Indication: GLAUCOMA
     Dates: start: 19870101
  2. HYTRIN [Concomitant]
     Indication: HYPERTENSION

REACTIONS (1)
  - EYE PRURITUS [None]
